FAERS Safety Report 6401870-8 (Version None)
Quarter: 2009Q4

REPORT INFORMATION
  Report Type: 
  Country: None (occurrence: None)
  Receive Date: 20091013
  Receipt Date: 20091013
  Transmission Date: 20100525
  Serious: Yes (Hospitalization, Disabling)
  Sender: FDA-Public Use
  Company Number: None

PATIENT
  Age: 50 Year
  Sex: Female
  Weight: 84.369 kg

DRUGS (1)
  1. LOVENOX [Suspect]
     Indication: PREOPERATIVE CARE
     Dosage: 80 MG EVERY 12 HOURS SQ  ONE INJECTION ONLY
     Route: 058
     Dates: start: 20091011, end: 20091011

REACTIONS (2)
  - HAEMORRHAGE [None]
  - RASH [None]
